FAERS Safety Report 25813852 (Version 1)
Quarter: 2025Q3

REPORT INFORMATION
  Report Type: Spontaneous
  Country: US (occurrence: US)
  Receive Date: 20250917
  Receipt Date: 20250917
  Transmission Date: 20251020
  Serious: No
  Sender: ARDELYX
  Company Number: US-ARDELYX-2025ARDX005507

PATIENT
  Sex: Female

DRUGS (4)
  1. XPHOZAH [Suspect]
     Active Substance: TENAPANOR HYDROCHLORIDE
     Indication: Chronic kidney disease
     Route: 048
  2. XPHOZAH [Suspect]
     Active Substance: TENAPANOR HYDROCHLORIDE
     Indication: Hyperphosphataemia
  3. SEVELAMER [Concomitant]
     Active Substance: SEVELAMER
     Indication: Product used for unknown indication
     Route: 065
  4. LANTHANUM CARBONATE [Concomitant]
     Active Substance: LANTHANUM CARBONATE
     Indication: Product used for unknown indication
     Route: 065

REACTIONS (4)
  - Diarrhoea [Unknown]
  - Intentional dose omission [Unknown]
  - Inappropriate schedule of product administration [Unknown]
  - Insurance issue [Unknown]
